FAERS Safety Report 6688343-2 (Version None)
Quarter: 2010Q2

REPORT INFORMATION
  Report Type: 
  Country: None (occurrence: None)
  Receive Date: 20100420
  Receipt Date: 20100413
  Transmission Date: 20101027
  Serious: Yes (Other)
  Sender: FDA-Public Use
  Company Number: US-B.I. PHARMACEUTICALS,INC./RIDGEFIELD-2010-BP-04249BP

PATIENT
  Age: 65 Year
  Sex: Female
  Weight: 63 kg

DRUGS (7)
  1. MELOXICAM [Suspect]
     Indication: LIGAMENT SPRAIN
     Dosage: 15 MG
     Route: 048
     Dates: start: 20100201, end: 20100201
  2. MELOXICAM [Suspect]
     Indication: RADICULOPATHY
  3. CELECOXIB [Suspect]
     Indication: LIGAMENT SPRAIN
     Dosage: 200 MG
     Route: 048
     Dates: start: 20100201, end: 20100216
  4. CELECOXIB [Suspect]
     Indication: RADICULOPATHY
  5. CELECOXIB [Suspect]
     Indication: BACK DISORDER
  6. CARISOPRODOL [Suspect]
     Indication: MUSCLE SPASMS
     Route: 048
     Dates: start: 20100210
  7. ASPIRIN [Concomitant]

REACTIONS (4)
  - DYSSTASIA [None]
  - INSOMNIA [None]
  - MUSCLE SPASMS [None]
  - PAIN [None]
